FAERS Safety Report 17111500 (Version 1)
Quarter: 2019Q4

REPORT INFORMATION
  Report Type: Spontaneous
  Country: CZ (occurrence: CZ)
  Receive Date: 20191204
  Receipt Date: 20191204
  Transmission Date: 20200122
  Serious: Yes (Other)
  Sender: FDA-Public Use
  Company Number: CZ-BAXTER-2019BAX024648

PATIENT
  Age: 62 Year
  Sex: Female

DRUGS (2)
  1. CISPLATINA [Suspect]
     Active Substance: CISPLATIN
     Indication: PLEURAL MESOTHELIOMA
     Route: 065
  2. DOXIL [Suspect]
     Active Substance: DOXORUBICIN HYDROCHLORIDE
     Indication: PLEURAL MESOTHELIOMA
     Route: 065

REACTIONS (1)
  - Tachyarrhythmia [Recovered/Resolved]
